FAERS Safety Report 5783071-X (Version None)
Quarter: 2008Q2

REPORT INFORMATION
  Report Type: 
  Country: None (occurrence: None)
  Receive Date: 20080619
  Receipt Date: 20080616
  Transmission Date: 20081010
  Serious: Yes (Hospitalization)
  Sender: FDA-Public Use
  Company Number: GXKR2008DE05384

PATIENT
  Age: 78 Year
  Sex: Male
  Weight: 78.3 kg

DRUGS (2)
  1. SIMVASTATIN [Suspect]
     Indication: HYPERLIPIDAEMIA
     Dosage: 30 MG, QD, ORAL
     Route: 048
     Dates: start: 20080221
  2. COUMADIN [Suspect]
     Indication: AORTIC VALVE REPLACEMENT
     Dosage: SCHEME: ONE DAY 5 MG, THEN 2.5 MG DAILY FOR TWO DAYS, ORAL
     Route: 048

REACTIONS (6)
  - APHASIA [None]
  - CEREBRAL INFARCTION [None]
  - DRUG INTOLERANCE [None]
  - FACIAL PARESIS [None]
  - INTERNATIONAL NORMALISED RATIO DECREASED [None]
  - LABORATORY TEST ABNORMAL [None]
